FAERS Safety Report 12721491 (Version 1)
Quarter: 2016Q3

REPORT INFORMATION
  Report Type: Spontaneous
  Country: US (occurrence: US)
  Receive Date: 20160906
  Receipt Date: 20160906
  Transmission Date: 20161109
  Serious: Yes (Life-Threatening)
  Sender: FDA-Public Use
  Company Number: None

PATIENT
  Age: 63 Year
  Weight: 77.11 kg

DRUGS (1)
  1. INSULIN PUMP [Suspect]
     Active Substance: INSULIN NOS

REACTIONS (5)
  - Blood glucose decreased [None]
  - Dizziness [None]
  - Overdose [None]
  - Device issue [None]
  - Incorrect dose administered by device [None]

NARRATIVE: CASE EVENT DATE: 20160823
